FAERS Safety Report 6310295-5 (Version None)
Quarter: 2009Q3

REPORT INFORMATION
  Report Type: 
  Country: None (occurrence: None)
  Receive Date: 20090814
  Receipt Date: 20090807
  Transmission Date: 20100115
  Serious: Yes (Hospitalization, Other)
  Sender: FDA-Public Use
  Company Number: PHEH2009US06714

PATIENT
  Sex: Female
  Weight: 69.4 kg

DRUGS (14)
  1. EXELON [Suspect]
     Indication: DEMENTIA
     Dosage: 4.6 MG, QD
     Route: 062
     Dates: start: 20090322, end: 20090516
  2. ARICEPT [Suspect]
  3. NAMENDA [Concomitant]
     Dosage: 10 MG, BID
     Route: 048
  4. PLAVIX [Concomitant]
     Dosage: 75 MG, QD
  5. ASPIRIN [Concomitant]
     Dosage: 81 MG, QD
     Route: 048
  6. CELEXA [Concomitant]
     Dosage: 40 MG, QD
     Route: 048
  7. ATIVAN [Concomitant]
     Dosage: 0.5 MG, BID
     Route: 048
  8. GLYBURIDE [Concomitant]
     Dosage: 5 MG, BID WITH MEALS
     Route: 048
     Dates: end: 20090505
  9. GLYBURIDE [Concomitant]
     Dosage: NO TREATMENT
  10. GLYBURIDE [Concomitant]
     Dosage: 10 MG, BID
     Route: 048
     Dates: start: 20090520
  11. MILK OF MAGNESIA TAB [Concomitant]
     Dosage: 15 ML, QID PRN
  12. TYLENOL (CAPLET) [Concomitant]
     Indication: PAIN
     Dosage: 650 MG, Q4H PRN
  13. TYLENOL (CAPLET) [Concomitant]
     Indication: PYREXIA
  14. FERROSULFAT [Concomitant]
     Dosage: 325 MG, QD
     Route: 048

REACTIONS (12)
  - BLOOD ALBUMIN DECREASED [None]
  - BLOOD BILIRUBIN DECREASED [None]
  - BLOOD TRIGLYCERIDES INCREASED [None]
  - CONFUSIONAL STATE [None]
  - FALL [None]
  - HEAD INJURY [None]
  - HIGH DENSITY LIPOPROTEIN DECREASED [None]
  - LETHARGY [None]
  - LOW DENSITY LIPOPROTEIN INCREASED [None]
  - PROTEIN TOTAL DECREASED [None]
  - SYNCOPE [None]
  - TOTAL CHOLESTEROL/HDL RATIO ABNORMAL [None]
